FAERS Safety Report 6173243-7 (Version None)
Quarter: 2009Q2

REPORT INFORMATION
  Report Type: 
  Country: None (occurrence: None)
  Receive Date: 20090424
  Receipt Date: 20081230
  Transmission Date: 20091009
  Serious: No
  Sender: FDA-Public Use
  Company Number: ALL1-2008-03649

PATIENT
  Age: 16 Year
  Sex: Male
  Weight: 61.2 kg

DRUGS (1)
  1. VYVANSE [Suspect]
     Indication: ATTENTION DEFICIT/HYPERACTIVITY DISORDER
     Dosage: 30 MG, 1X/DAY:QD, ORAL
     Route: 048
     Dates: start: 20080501

REACTIONS (5)
  - DRUG EFFECT INCREASED [None]
  - FEELING ABNORMAL [None]
  - GROWTH RETARDATION [None]
  - INCORRECT DOSE ADMINISTERED [None]
  - OFF LABEL USE [None]
